FAERS Safety Report 8604164 (Version 4)
Quarter: 2012Q4

REPORT INFORMATION
  Report Type: 
  Country: US (occurrence: US)
  Receive Date: 20120608
  Receipt Date: 20121127
  Transmission Date: 20130627
  Serious: Yes (Other)
  Sender: FDA-Public Use
  Company Number: US-PFIZER INC-2012137104

PATIENT
  Sex: Female

DRUGS (8)
  1. LYRICA [Suspect]
     Indication: FIBROMYALGIA
     Dosage: 50 mg, UNK
     Route: 048
  2. LYRICA [Suspect]
     Indication: ARTHRALGIA
     Dosage: 25 mg, UNK
     Route: 048
     Dates: start: 201206
  3. LYRICA [Suspect]
     Indication: NECK PAIN
  4. LYRICA [Suspect]
     Indication: BACK PAIN
  5. LYRICA [Suspect]
     Indication: PAIN
  6. METOPROLOL [Concomitant]
     Indication: BLOOD PRESSURE ABNORMAL
     Dosage: UNK
  7. DIOVAN HCT [Concomitant]
     Indication: BLOOD PRESSURE ABNORMAL
     Dosage: UNK
  8. MOBIC [Concomitant]
     Indication: JOINT PAIN
     Dosage: UNK

REACTIONS (7)
  - Activities of daily living impaired [Unknown]
  - Drug ineffective [Unknown]
  - Fluid retention [Unknown]
  - Product colour issue [Unknown]
  - Somnolence [Unknown]
  - Fatigue [Unknown]
  - Musculoskeletal stiffness [Unknown]
